FAERS Safety Report 18294986 (Version 4)
Quarter: 2021Q3

REPORT INFORMATION
  Report Type: Spontaneous
  Country: US (occurrence: US)
  Receive Date: 20200922
  Receipt Date: 20210913
  Transmission Date: 20211014
  Serious: No
  Sender: FDA-Public Use
  Company Number: US-GLOBAL BLOOD THERAPEUTICS INC-US-GBT-20-01957

PATIENT
  Age: 60 Year
  Sex: Female

DRUGS (3)
  1. OXBRYTA [Suspect]
     Active Substance: VOXELOTOR
     Route: 048
     Dates: start: 20210507
  2. OXBRYTA [Suspect]
     Active Substance: VOXELOTOR
     Indication: SICKLE CELL DISEASE
     Route: 048
     Dates: start: 20200709, end: 202010
  3. OXBRYTA [Suspect]
     Active Substance: VOXELOTOR
     Route: 048
     Dates: start: 202009, end: 20210506

REACTIONS (21)
  - Hot flush [Unknown]
  - Weight decreased [Unknown]
  - Anaemia [Unknown]
  - Palpitations [Unknown]
  - Oropharyngeal pain [Unknown]
  - Dry skin [Unknown]
  - Decreased appetite [Recovered/Resolved]
  - Fatigue [Unknown]
  - Constipation [Unknown]
  - Gastritis [Recovered/Resolved]
  - Pyrexia [Not Recovered/Not Resolved]
  - Skin hyperpigmentation [Unknown]
  - Vomiting [Recovering/Resolving]
  - Abdominal discomfort [Recovered/Resolved]
  - Mood altered [Unknown]
  - Product dose omission issue [Unknown]
  - Skin weeping [Unknown]
  - Therapy non-responder [Unknown]
  - Abdominal pain [Unknown]
  - Diarrhoea [Recovering/Resolving]
  - Nausea [Recovered/Resolved]

NARRATIVE: CASE EVENT DATE: 2020
